FAERS Safety Report 6140744-7 (Version None)
Quarter: 2009Q2

REPORT INFORMATION
  Report Type: 
  Country: None (occurrence: None)
  Receive Date: 20090402
  Receipt Date: 20090402
  Transmission Date: 20091009
  Serious: Yes (Hospitalization)
  Sender: FDA-Public Use
  Company Number: PHHO2003FR10593

PATIENT
  Sex: Female

DRUGS (4)
  1. CGS 20267 T30748+ [Suspect]
     Indication: BREAST CANCER
     Dosage: 2.5 MG, QD
     Route: 048
     Dates: start: 20011019, end: 20020519
  2. CGS 20267 T30748+ [Suspect]
     Dates: end: 20020602
  3. CGS 20267 T30748+ [Suspect]
     Route: 048
     Dates: end: 20030603
  4. NOLVADEX [Suspect]

REACTIONS (9)
  - ANAEMIA [None]
  - ARTHRALGIA [None]
  - BONE PAIN [None]
  - INFLAMMATION [None]
  - MYALGIA [None]
  - MYELODYSPLASTIC SYNDROME [None]
  - POLYARTHRITIS [None]
  - RHEUMATOID ARTHRITIS [None]
  - THROMBOCYTHAEMIA [None]
